FAERS Safety Report 16871833 (Version 1)
Quarter: 2019Q4

REPORT INFORMATION
  Report Type: Spontaneous
  Country: GB (occurrence: GB)
  Receive Date: 20191001
  Receipt Date: 20191001
  Transmission Date: 20200122
  Serious: Yes (Other)
  Sender: FDA-Public Use
  Company Number: GB-HETERO-HET2019GB01338

PATIENT
  Age: 28 Year
  Sex: Male
  Weight: 310 kg

DRUGS (4)
  1. LINEZOLID. [Suspect]
     Active Substance: LINEZOLID
     Indication: BETA HAEMOLYTIC STREPTOCOCCAL INFECTION
  2. LINEZOLID. [Suspect]
     Active Substance: LINEZOLID
     Indication: STAPHYLOCOCCAL SKIN INFECTION
     Dosage: 600 MILLIGRAM, TID
     Route: 048
  3. LINEZOLID. [Suspect]
     Active Substance: LINEZOLID
     Indication: DECUBITUS ULCER
  4. LIRAGLUTIDE [Concomitant]
     Active Substance: LIRAGLUTIDE
     Indication: OBESITY
     Dosage: 3 MILLIGRAM, QD
     Route: 065

REACTIONS (5)
  - Nausea [Unknown]
  - Bone marrow failure [Unknown]
  - Rhinitis [Unknown]
  - Off label use [Unknown]
  - Oropharyngeal pain [Unknown]

NARRATIVE: CASE EVENT DATE: 201802
